FAERS Safety Report 4820365-6 (Version None)
Quarter: 2005Q4

REPORT INFORMATION
  Report Type: 
  Country: None (occurrence: None)
  Receive Date: 20051014
  Receipt Date: 20050906
  Transmission Date: 20060501
  Serious: No
  Sender: FDA-Public Use
  Company Number: 2005SP002651

PATIENT
  Age: 20 Year
  Sex: Female
  Weight: 68.0396 kg

DRUGS (3)
  1. LUNESTA [Suspect]
     Dosage: 3 MG;HS;ORAL, 4.5 MG;HS;ORAL, 27 MG;HS;ORAL
     Route: 048
     Dates: start: 20050801, end: 20050801
  2. LUNESTA [Suspect]
     Dosage: 3 MG;HS;ORAL, 4.5 MG;HS;ORAL, 27 MG;HS;ORAL
     Route: 048
     Dates: start: 20050801, end: 20050801
  3. LUNESTA [Suspect]
     Dosage: 3 MG;HS;ORAL, 4.5 MG;HS;ORAL, 27 MG;HS;ORAL
     Route: 048
     Dates: start: 20050828, end: 20050828

REACTIONS (5)
  - ACCIDENTAL OVERDOSE [None]
  - AMNESIA [None]
  - DRUG INEFFECTIVE [None]
  - INSOMNIA [None]
  - MALAISE [None]
